FAERS Safety Report 25799292 (Version 1)
Quarter: 2025Q3

REPORT INFORMATION
  Report Type: Spontaneous
  Country: EU (occurrence: EU)
  Receive Date: 20250913
  Receipt Date: 20250913
  Transmission Date: 20251020
  Serious: Yes (Other)
  Sender: ACCORD
  Company Number: None

PATIENT
  Age: 70 Year
  Sex: Male
  Weight: 80 kg

DRUGS (5)
  1. TADALAFIL [Suspect]
     Active Substance: TADALAFIL
     Indication: Pulmonary arterial hypertension
     Dosage: 12 COATED TABLETS 20 MG: 20 MG/DAY
     Dates: start: 20250803, end: 20250805
  2. BISOPROLOL [Concomitant]
     Active Substance: BISOPROLOL
     Dosage: 28 COATED TABLETS 3.75 MG: 1 TABLET/DAY
  3. OLMESARTAN MEDOXOMIL [Concomitant]
     Active Substance: OLMESARTAN MEDOXOMIL
     Dosage: 28 COATED TABLETS 10 MG: 1 TABLET/DAY
  4. METFORMIN [Concomitant]
     Active Substance: METFORMIN HYDROCHLORIDE
  5. DAPAGLIFLOZIN [Concomitant]
     Active Substance: DAPAGLIFLOZIN
     Dosage: COATED TABLETS 10 MG: 1 TABLET/DAY

REACTIONS (7)
  - Oxygen saturation decreased [Recovered/Resolved with Sequelae]
  - Presyncope [Recovered/Resolved with Sequelae]
  - Extrasystoles [Recovered/Resolved]
  - Dyspnoea [Recovered/Resolved with Sequelae]
  - Ocular hyperaemia [Recovered/Resolved]
  - Hyperhidrosis [Recovered/Resolved]
  - Vomiting [Recovered/Resolved]

NARRATIVE: CASE EVENT DATE: 20250803
